FAERS Safety Report 25949304 (Version 1)
Quarter: 2025Q4

REPORT INFORMATION
  Report Type: Spontaneous
  Country: JP (occurrence: JP)
  Receive Date: 20251022
  Receipt Date: 20251022
  Transmission Date: 20260118
  Serious: Yes (Other)
  Sender: CHEPLAPHARM
  Company Number: JP-ELI_LILLY_AND_COMPANY-JP202201010273

PATIENT
  Age: 6 Decade
  Sex: Female

DRUGS (3)
  1. OLANZAPINE [Suspect]
     Active Substance: OLANZAPINE
     Indication: Schizophrenia
     Dosage: 10 MG/DAY
     Route: 048
  2. RISPERIDONE [Suspect]
     Active Substance: RISPERIDONE
     Dosage: 3 MG/DAY
  3. ARIPIPRAZOLE [Suspect]
     Active Substance: ARIPIPRAZOLE
     Dosage: 18 MG/DAY

REACTIONS (2)
  - Breast cancer stage IV [Unknown]
  - Metastases to lung [Unknown]
